FAERS Safety Report 14170186 (Version 2)
Quarter: 2018Q1

REPORT INFORMATION
  Report Type: Spontaneous
  Country: US (occurrence: US)
  Receive Date: 20171108
  Receipt Date: 20180207
  Transmission Date: 20180508
  Serious: Yes (Hospitalization)
  Sender: FDA-Public Use
  Company Number: US-JNJFOC-20171101165

PATIENT
  Age: 62 Year
  Sex: Female

DRUGS (5)
  1. JANUVIA [Concomitant]
     Active Substance: SITAGLIPTIN PHOSPHATE
     Indication: TYPE 2 DIABETES MELLITUS
     Route: 048
  2. INVOKANA [Suspect]
     Active Substance: CANAGLIFLOZIN
     Indication: TYPE 2 DIABETES MELLITUS
     Route: 048
     Dates: start: 20160430, end: 20160604
  3. LANTUS [Concomitant]
     Active Substance: INSULIN GLARGINE
     Indication: TYPE 2 DIABETES MELLITUS
     Dosage: AT A DOSE OF 54 UNITS AT BEDTIME
     Route: 058
     Dates: start: 201604
  4. INVOKANA [Suspect]
     Active Substance: CANAGLIFLOZIN
     Indication: TYPE 2 DIABETES MELLITUS
     Dosage: IN VARYING DOSES OF 100 TO 300 MG
     Route: 048
     Dates: start: 20140619, end: 20160422
  5. LANTUS [Concomitant]
     Active Substance: INSULIN GLARGINE
     Indication: TYPE 2 DIABETES MELLITUS
     Dosage: AT DOSE OF 50 UNITS AT BEDTIME
     Route: 058
     Dates: start: 201604

REACTIONS (3)
  - Toe amputation [Unknown]
  - Coronary artery disease [Recovering/Resolving]
  - Osteomyelitis [Unknown]

NARRATIVE: CASE EVENT DATE: 201603
